FAERS Safety Report 24125206 (Version 3)
Quarter: 2024Q3

REPORT INFORMATION
  Report Type: Report from Study
  Country: DE (occurrence: DE)
  Receive Date: 20240723
  Receipt Date: 20240808
  Transmission Date: 20241017
  Serious: Yes (Death)
  Sender: ABBVIE
  Company Number: DE-ABBVIE-5848444

PATIENT
  Age: 88 Year
  Sex: Male

DRUGS (2)
  1. CARBIDOPA\LEVODOPA [Suspect]
     Active Substance: CARBIDOPA\LEVODOPA
     Indication: Parkinson^s disease
     Dosage: MD 9,0 ML, KR 2,4 ML/H, ED 1,0 ML
     Route: 050
     Dates: start: 20180227, end: 20240719
  2. CARBIDOPA\LEVODOPA [Suspect]
     Active Substance: CARBIDOPA\LEVODOPA

REACTIONS (2)
  - Death [Fatal]
  - Device dislocation [Unknown]

NARRATIVE: CASE EVENT DATE: 20240719
